FAERS Safety Report 11253616 (Version 1)
Quarter: 2015Q3

REPORT INFORMATION
  Report Type: Spontaneous
  Country: US (occurrence: None)
  Receive Date: 20150708
  Receipt Date: 20150708
  Transmission Date: 20151125
  Serious: Yes (Hospitalization)
  Sender: FDA-Public Use
  Company Number: None

PATIENT
  Age: 75 Year
  Sex: Male
  Weight: 93 kg

DRUGS (3)
  1. BENDAMUSTINE HYDROCHLORIDE [Suspect]
     Active Substance: BENDAMUSTINE HYDROCHLORIDE
     Dates: end: 20150706
  2. VELCADE [Suspect]
     Active Substance: BORTEZOMIB
     Dates: end: 20150706
  3. RITUXIMAB [Suspect]
     Active Substance: RITUXIMAB
     Dates: end: 20150706

REACTIONS (6)
  - Pruritus [None]
  - Chest pain [None]
  - Rash [None]
  - Palmar erythema [None]
  - Chills [None]
  - Dizziness [None]

NARRATIVE: CASE EVENT DATE: 20150706
